FAERS Safety Report 4389204-4 (Version None)
Quarter: 2004Q2

REPORT INFORMATION
  Report Type: 
  Country: None (occurrence: None)
  Receive Date: 20040628
  Receipt Date: 20040610
  Transmission Date: 20050107
  Serious: Yes (Hospitalization)
  Sender: FDA-Public Use
  Company Number: 2004-DE-03406AG

PATIENT
  Age: 40 Year
  Sex: Female

DRUGS (6)
  1. DESYREL [Suspect]
     Indication: SUICIDE ATTEMPT
     Dosage: NR (NR), PO
     Route: 048
  2. ATARAX [Suspect]
     Indication: SUICIDE ATTEMPT
     Dosage: NR (NR); PO
     Route: 048
  3. ALPRAZOLAM [Suspect]
     Indication: SUICIDE ATTEMPT
     Dosage: NR (NR); PO
     Route: 048
  4. LITHIUM CARBONATE [Suspect]
     Indication: SUICIDE ATTEMPT
     Dosage: 5600 MG (NR); PO
     Route: 048
  5. CLOMIPRAMINE HCL [Suspect]
     Indication: SUICIDE ATTEMPT
     Dosage: NR (NR); PO
     Route: 048
  6. MILNACIPRAN HYDROCHLORIDE (MILNACIPRAN HYDROCHLORIDE) [Suspect]
     Indication: SUICIDE ATTEMPT
     Dosage: NR (NR); PO
     Route: 048

REACTIONS (3)
  - HAEMODIALYSIS [None]
  - MULTIPLE DRUG OVERDOSE [None]
  - SUICIDE ATTEMPT [None]
